FAERS Safety Report 6925546-3 (Version None)
Quarter: 2010Q3

REPORT INFORMATION
  Report Type: 
  Country: None (occurrence: None)
  Receive Date: 20100816
  Receipt Date: 20100809
  Transmission Date: 20110219
  Serious: Yes (Hospitalization)
  Sender: FDA-Public Use
  Company Number: US-ROCHE-720331

PATIENT
  Sex: Male

DRUGS (8)
  1. BEVACIZUMAB [Suspect]
     Indication: COLORECTAL CANCER
     Dosage: ON 06 AUGUST 2010, STUDY HELD
     Route: 065
     Dates: start: 20100525, end: 20100721
  2. EVEROLIMUS [Suspect]
     Indication: COLORECTAL CANCER
     Dosage: FREQUENCY :QD
     Route: 048
     Dates: start: 20100525, end: 20100721
  3. LBH589 [Suspect]
     Indication: COLORECTAL CANCER
     Dosage: FREQUENCY :TUES,THUR AND SAT,ON 06 AUGUST 2010, STUDY HELD
     Route: 065
     Dates: start: 20100525, end: 20100721
  4. MORPHINE [Concomitant]
  5. CYMBALTA [Concomitant]
  6. RITALIN [Concomitant]
  7. NEURONTIN [Concomitant]
  8. ACETAMINOPHEN [Concomitant]

REACTIONS (4)
  - ABDOMINAL PAIN [None]
  - BILE DUCT OBSTRUCTION [None]
  - CHOLECYSTITIS [None]
  - THROMBOCYTOPENIA [None]
